FAERS Safety Report 21720623 (Version 2)
Quarter: 2022Q4

REPORT INFORMATION
  Report Type: Spontaneous
  Country: IT (occurrence: IT)
  Receive Date: 20221213
  Receipt Date: 20221227
  Transmission Date: 20230112
  Serious: Yes (Hospitalization, Other)
  Sender: FDA-Public Use
  Company Number: IT-BoehringerIngelheim-2022-BI-207693

PATIENT
  Age: 70 Year
  Sex: Male
  Weight: 75 kg

DRUGS (1)
  1. DABIGATRAN [Suspect]
     Active Substance: DABIGATRAN
     Indication: Atrial fibrillation
     Dates: start: 20210301

REACTIONS (2)
  - Gastrointestinal haemorrhage [Recovered/Resolved]
  - Hypovolaemic shock [Recovered/Resolved]

NARRATIVE: CASE EVENT DATE: 20220101
